FAERS Safety Report 21055304 (Version 1)
Quarter: 2022Q3

REPORT INFORMATION
  Report Type: Report from Study
  Country: US (occurrence: None)
  Receive Date: 20220708
  Receipt Date: 20220708
  Transmission Date: 20221027
  Serious: Yes (Hospitalization)
  Sender: FDA-Public Use
  Company Number: US-ROCHE-3131073

PATIENT
  Age: 67 Year
  Sex: Male
  Weight: 100.7 kg

DRUGS (17)
  1. CLONAZEPAM [Suspect]
     Active Substance: CLONAZEPAM
     Indication: Anxiety
     Dosage: 0.5 MG, BID AS NEEDED
     Route: 048
  2. TAFAMIDIS MEGLUMINE [Suspect]
     Active Substance: TAFAMIDIS MEGLUMINE
     Indication: Cardiac amyloidosis
     Route: 048
     Dates: start: 20180711
  3. NORCO [Suspect]
     Active Substance: ACETAMINOPHEN\HYDROCODONE BITARTRATE
     Indication: Back pain
     Dosage: EVERY 6 HOURS AS NEEDED (Q6 PRN)
     Route: 048
     Dates: start: 20160202
  4. ATORVASTATIN [Concomitant]
     Active Substance: ATORVASTATIN
  5. GREEN TEA EXTRACT [Concomitant]
  6. INSULIN GLARGINE [Concomitant]
     Active Substance: INSULIN GLARGINE
     Indication: Diabetes mellitus
     Dates: start: 20180815
  7. SPIRONOLACTONE [Concomitant]
     Active Substance: SPIRONOLACTONE
     Indication: Cardiac failure
     Dates: start: 20160720
  8. TORSEMIDE [Concomitant]
     Active Substance: TORSEMIDE
     Indication: Cardiac failure
     Dates: start: 20180717
  9. THIAMINE [Concomitant]
     Active Substance: THIAMINE
     Indication: Alcoholism
     Dates: start: 20180408
  10. DOCUSATE SODIUM [Concomitant]
     Active Substance: DOCUSATE SODIUM
     Indication: Constipation prophylaxis
     Dates: start: 20121023
  11. FENOFIBRATE [Concomitant]
     Active Substance: FENOFIBRATE
     Indication: Hyperlipidaemia
  12. FERROUS SULFATE [Concomitant]
     Active Substance: FERROUS SULFATE
  13. FOLIC ACID [Concomitant]
     Active Substance: FOLIC ACID
     Indication: Alcoholism
     Dates: start: 20160408
  14. ZOLPIDEM [Concomitant]
     Active Substance: ZOLPIDEM TARTRATE
     Indication: Insomnia
     Dates: start: 20190220
  15. METOPROLOL TARTRATE [Concomitant]
     Active Substance: METOPROLOL TARTRATE
     Indication: Atrial fibrillation
     Dates: start: 20190314
  16. APIXABAN [Concomitant]
     Active Substance: APIXABAN
     Indication: Atrial fibrillation
     Dates: start: 20190212
  17. AZITHROMYCIN [Concomitant]
     Active Substance: AZITHROMYCIN
     Indication: Pneumonia
     Dates: start: 20190315, end: 20190320

REACTIONS (1)
  - Lethargy [Recovered/Resolved with Sequelae]

NARRATIVE: CASE EVENT DATE: 20190322
